FAERS Safety Report 16361065 (Version 1)
Quarter: 2019Q2

REPORT INFORMATION
  Report Type: Spontaneous
  Country: GB (occurrence: GB)
  Receive Date: 20190528
  Receipt Date: 20190528
  Transmission Date: 20190711
  Serious: Yes (Hospitalization)
  Sender: FDA-Public Use
  Company Number: GB-MYLANLABS-2019M1049906

PATIENT
  Age: 92 Year
  Sex: Male
  Weight: 82 kg

DRUGS (2)
  1. FORMOTEROL [Suspect]
     Active Substance: FORMOTEROL
     Indication: CHRONIC OBSTRUCTIVE PULMONARY DISEASE
     Dosage: 2 DOSAGE FORM, QD (396/11.8)
     Route: 055
     Dates: start: 20180823, end: 20180910
  2. ACLIDINIUM [Suspect]
     Active Substance: ACLIDINIUM BROMIDE
     Indication: CHRONIC OBSTRUCTIVE PULMONARY DISEASE
     Dosage: 2 DOSAGE FORM, QD (396/11.8)
     Route: 055
     Dates: start: 20180823, end: 20180910

REACTIONS (2)
  - Diarrhoea [Recovered/Resolved]
  - Urinary retention [Recovered/Resolved]
